FAERS Safety Report 7815893-5 (Version None)
Quarter: 2011Q4

REPORT INFORMATION
  Report Type: 
  Country: None (occurrence: None)
  Receive Date: 20111014
  Receipt Date: 20111007
  Transmission Date: 20120403
  Serious: Yes (Other)
  Sender: FDA-Public Use
  Company Number: US-B.I. PHARMACEUTICALS,INC./RIDGEFIELD-2011-BP-24033BP

PATIENT
  Age: 80 Year
  Sex: Female
  Weight: 42.2 kg

DRUGS (5)
  1. MOBIC [Suspect]
     Indication: ARTHRITIS
     Route: 065
  2. CELEBREX [Suspect]
     Indication: ARTHRITIS
     Dosage: 200 MG
     Route: 048
     Dates: start: 20110901, end: 20110902
  3. CELEBREX [Suspect]
     Dosage: 100 MG
     Route: 048
     Dates: start: 20110908, end: 20110909
  4. SYNTHROID [Concomitant]
     Indication: HYPOTHYROIDISM
  5. ZETIA [Concomitant]

REACTIONS (6)
  - KNEE ARTHROPLASTY [None]
  - NAUSEA [None]
  - VOMITING [None]
  - WEIGHT DECREASED [None]
  - DECREASED APPETITE [None]
  - ABDOMINAL DISTENSION [None]
